FAERS Safety Report 25705800 (Version 1)
Quarter: 2025Q3

REPORT INFORMATION
  Report Type: Spontaneous
  Country: GB (occurrence: GB)
  Receive Date: 20250820
  Receipt Date: 20250820
  Transmission Date: 20251020
  Serious: Yes (Hospitalization)
  Sender: NOVA LABORATORIES LIMITED
  Company Number: GB-Nova Laboratories Limited-2182870

PATIENT
  Age: 68 Year
  Sex: Male

DRUGS (13)
  1. XROMI [Suspect]
     Active Substance: HYDROXYUREA
     Indication: Product used for unknown indication
  2. MORPHINE [Concomitant]
     Active Substance: MORPHINE
  3. AMLODIPINE [Concomitant]
     Active Substance: AMLODIPINE BESYLATE
  4. EDOXABAN [Concomitant]
     Active Substance: EDOXABAN
  5. LANSOPRAZOLE [Concomitant]
     Active Substance: LANSOPRAZOLE
  6. DOCUSATE [Concomitant]
     Active Substance: DOCUSATE
  7. ZOPICLONE [Concomitant]
     Active Substance: ZOPICLONE
  8. UNSPECIFIED INGREDIENT [Concomitant]
     Active Substance: UNSPECIFIED INGREDIENT
  9. DEXAMETHASONE [Concomitant]
     Active Substance: DEXAMETHASONE
  10. MORPHINE SULFATE [Concomitant]
     Active Substance: MORPHINE SULFATE
  11. ATORVASTATIN [Concomitant]
     Active Substance: ATORVASTATIN
  12. FOLIC ACID [Concomitant]
     Active Substance: FOLIC ACID
  13. FERROUS FUMARATE [Concomitant]
     Active Substance: FERROUS FUMARATE

REACTIONS (1)
  - Petechiae [Unknown]
